FAERS Safety Report 7478272-9 (Version None)
Quarter: 2011Q2

REPORT INFORMATION
  Report Type: 
  Country: None (occurrence: None)
  Receive Date: 20110513
  Receipt Date: 20110510
  Transmission Date: 20111010
  Serious: Yes (Death)
  Sender: FDA-Public Use
  Company Number: PHHY2011US28802

PATIENT
  Sex: Male
  Weight: 71.655 kg

DRUGS (7)
  1. HYDROXYUREA [Concomitant]
     Indication: ACUTE MYELOID LEUKAEMIA
     Dosage: 2000 MG, DAILY
     Route: 048
     Dates: start: 20101008, end: 20110309
  2. ACYCLOVIR [Concomitant]
     Indication: ANTIVIRAL PROPHYLAXIS
     Dosage: 400 MG, BID
     Route: 048
     Dates: end: 20110309
  3. PEPCID [Concomitant]
     Indication: DYSPEPSIA
     Dosage: 20 MG, DAILY
     Route: 048
     Dates: end: 20110309
  4. FLUCONAZOLE [Concomitant]
     Indication: ANTIFUNGAL PROPHYLAXIS
     Dosage: 400 MG, DAILY
     Route: 048
     Dates: end: 20110309
  5. EXJADE [Suspect]
     Indication: IRON OVERLOAD
     Dosage: 1 G, BID
     Route: 048
     Dates: start: 20100514, end: 20110309
  6. PEPCID [Concomitant]
  7. DAPSONE [Concomitant]
     Indication: PROPHYLAXIS
     Dosage: 100 MG, DAILY
     Route: 048
     Dates: end: 20110309

REACTIONS (1)
  - ACUTE MYELOID LEUKAEMIA [None]
